FAERS Safety Report 22853702 (Version 4)
Quarter: 2024Q2

REPORT INFORMATION
  Report Type: Spontaneous
  Country: US (occurrence: US)
  Receive Date: 20230823
  Receipt Date: 20240621
  Transmission Date: 20240716
  Serious: Yes (Other)
  Sender: FDA-Public Use
  Company Number: US-BRISTOL-MYERS SQUIBB COMPANY-2023-118536

PATIENT
  Age: 70 Year
  Sex: Male

DRUGS (4)
  1. LENALIDOMIDE [Suspect]
     Active Substance: LENALIDOMIDE
     Indication: Plasma cell myeloma
     Dosage: TAKE 1 CAPSULE BY ?MOUTH EVERY DAY ON ?DAYS 1-14 OF A 21 DAY
     Route: 048
     Dates: start: 20230731
  2. LENALIDOMIDE [Suspect]
     Active Substance: LENALIDOMIDE
     Dosage: TAKE 1 CAPSULE BY ?MOUTH EVERY DAY ON ?DAYS 1-14 OF A 21 DAY
     Route: 048
     Dates: start: 20230731
  3. LENALIDOMIDE [Suspect]
     Active Substance: LENALIDOMIDE
     Dosage: TAKE 1 CAPSULE BY ?MOUTH EVERY DAY ON ?DAYS 1-14 OF A 21 DAY
     Route: 048
  4. LENALIDOMIDE [Suspect]
     Active Substance: LENALIDOMIDE
     Dosage: FREQUENCY: TAKE 1 CAPSULE BY MOUTH EVERY DAY ON DAYS 1-14 OF 21 DAY CYCLE
     Route: 048

REACTIONS (7)
  - Hernia pain [Unknown]
  - Off label use [Unknown]
  - Fatigue [Recovering/Resolving]
  - Product physical issue [Unknown]
  - Rash [Recovered/Resolved]
  - Product distribution issue [Unknown]
  - Therapy interrupted [Unknown]
